FAERS Safety Report 12602671 (Version 2)
Quarter: 2016Q3

REPORT INFORMATION
  Report Type: Spontaneous
  Country: US (occurrence: US)
  Receive Date: 20160728
  Receipt Date: 20160729
  Transmission Date: 20161109
  Serious: Yes (Hospitalization)
  Sender: FDA-Public Use
  Company Number: US-BAYER-2016-141690

PATIENT
  Age: 16 Year
  Sex: Female

DRUGS (2)
  1. SODIUM BICARBONATE. [Concomitant]
     Active Substance: SODIUM BICARBONATE
     Dosage: UNK
  2. ACETYLSALICYLIC ACID({=100 MG) [Suspect]
     Active Substance: ASPIRIN
     Dosage: UNK

REACTIONS (6)
  - Intentional overdose [None]
  - Tinnitus [None]
  - Metabolic acidosis [None]
  - Toxicity to various agents [None]
  - Respiratory alkalosis [None]
  - Intentional self-injury [None]
